FAERS Safety Report 8767730 (Version 1)
Quarter: 2012Q4

REPORT INFORMATION
  Report Type: 
  Country: FR (occurrence: FR)
  Receive Date: 20120904
  Receipt Date: 20120904
  Transmission Date: 20130627
  Serious: Yes (Hospitalization)
  Sender: FDA-Public Use
  Company Number: FR-ASTRAZENECA-2012SE64924

PATIENT
  Age: 21629 Day
  Sex: Male

DRUGS (6)
  1. BRILIQUE [Suspect]
     Indication: MYOCARDIAL INFARCTION
     Route: 048
     Dates: start: 20120718, end: 20120823
  2. BISOS [Concomitant]
     Indication: MYOCARDIAL INFARCTION
     Route: 048
  3. INEXIUM [Concomitant]
     Route: 048
  4. KARDEGIC [Concomitant]
     Indication: MYOCARDIAL INFARCTION
     Route: 048
  5. LEVOTHYROX [Concomitant]
     Route: 048
  6. TAHOR [Concomitant]
     Indication: MYOCARDIAL INFARCTION
     Route: 048

REACTIONS (2)
  - Thrombocytopenia [Not Recovered/Not Resolved]
  - Haematoma [Not Recovered/Not Resolved]
